FAERS Safety Report 14837970 (Version 1)
Quarter: 2018Q2

REPORT INFORMATION
  Report Type: Spontaneous
  Country: FR (occurrence: FR)
  Receive Date: 20180502
  Receipt Date: 20180502
  Transmission Date: 20180711
  Serious: Yes (Other)
  Sender: FDA-Public Use
  Company Number: FR-PFIZER INC-2018171169

PATIENT
  Age: 68 Year
  Sex: Male

DRUGS (2)
  1. SOLU-MEDROL [Suspect]
     Active Substance: METHYLPREDNISOLONE SODIUM SUCCINATE
     Indication: ADENOCARCINOMA OF COLON
     Dosage: UNK
     Route: 041
     Dates: start: 20180206, end: 20180206
  2. ZALTRAP [Suspect]
     Active Substance: ZIV-AFLIBERCEPT
     Indication: ADENOCARCINOMA OF COLON
     Dosage: UNK
     Route: 041
     Dates: start: 20180206, end: 20180206

REACTIONS (2)
  - Thrombocytopenia [Recovered/Resolved]
  - Mucosal haemorrhage [Recovered/Resolved]

NARRATIVE: CASE EVENT DATE: 20180206
